FAERS Safety Report 24791568 (Version 1)
Quarter: 2024Q4

REPORT INFORMATION
  Report Type: Spontaneous
  Country: ZA (occurrence: ZA)
  Receive Date: 20241231
  Receipt Date: 20241231
  Transmission Date: 20250115
  Serious: Yes (Hospitalization, Other)
  Sender: AMGEN
  Company Number: ZA-SERVIER-S24017269

PATIENT
  Age: 36 Year
  Sex: Female

DRUGS (30)
  1. IVABRADINE HYDROCHLORIDE [Suspect]
     Active Substance: IVABRADINE HYDROCHLORIDE
     Indication: Angina pectoris
     Dosage: 5 MG, QD
     Route: 048
  2. CHLOROQUINE SULFATE [Concomitant]
     Active Substance: CHLOROQUINE SULFATE
     Indication: Systemic lupus erythematosus
     Dosage: 200 MG, QD
     Route: 048
  3. LEFLUNOMIDE [Concomitant]
     Active Substance: LEFLUNOMIDE
     Indication: Rheumatoid arthritis
     Dosage: 20 MG, QD
     Route: 048
  4. LOTEMAX [Concomitant]
     Active Substance: LOTEPREDNOL ETABONATE
     Indication: Product used for unknown indication
     Dosage: UNK
     Route: 047
  5. PATANOL [Concomitant]
     Active Substance: OLOPATADINE HYDROCHLORIDE
     Indication: Product used for unknown indication
     Dosage: UNK
     Route: 047
  6. Sandoz co amoxyclav [Concomitant]
     Indication: Product used for unknown indication
     Dosage: UNK
     Route: 048
  7. FLUTICASONE PROPIONATE [Concomitant]
     Active Substance: FLUTICASONE PROPIONATE
     Indication: Hypersensitivity
     Dosage: UNK
     Route: 045
  8. LORNOXICAM [Concomitant]
     Active Substance: LORNOXICAM
     Indication: Product used for unknown indication
     Dosage: 8 MG, BID
     Route: 048
  9. MEDROL [Concomitant]
     Active Substance: METHYLPREDNISOLONE
     Indication: Product used for unknown indication
     Dosage: 8 MG, BID
     Route: 048
  10. IVY EXTRACT [Concomitant]
     Active Substance: IVY EXTRACT
     Indication: Product used for unknown indication
     Dosage: 10 ML, TID
     Route: 048
  11. FEMODENE ED [Concomitant]
     Indication: Contraception
     Dosage: UNK
     Route: 048
  12. PREGABALIN [Concomitant]
     Active Substance: PREGABALIN
     Indication: Epilepsy
     Dosage: 25 MG, QD
     Route: 048
  13. PREGABALIN [Concomitant]
     Active Substance: PREGABALIN
     Dosage: 75 MG, QD
     Route: 048
  14. NUVIGIL [Concomitant]
     Active Substance: ARMODAFINIL
     Indication: Product used for unknown indication
     Dosage: 150 MG, QD
     Route: 048
  15. ROSUVASTATIN [Concomitant]
     Active Substance: ROSUVASTATIN
     Indication: Blood cholesterol abnormal
     Dosage: 5 MG, QD
     Route: 048
  16. EUTHYROX [Concomitant]
     Active Substance: LEVOTHYROXINE SODIUM
     Indication: Hypothyroidism
     Dosage: 50 MUG, QD
     Route: 048
  17. PREDNISONE [Concomitant]
     Active Substance: PREDNISONE
     Indication: Product used for unknown indication
     Dosage: 5 MG, UNK
     Route: 048
  18. CLONIDINE HYDROCHLORIDE [Concomitant]
     Active Substance: CLONIDINE HYDROCHLORIDE
     Indication: Prophylaxis
     Dosage: 0.025 MG, QD
     Route: 048
  19. DULOXETINE HYDROCHLORIDE [Concomitant]
     Active Substance: DULOXETINE HYDROCHLORIDE
     Indication: Depression
     Dosage: 60 MG, QD
     Route: 048
  20. AMITRIPTYLINE [Concomitant]
     Active Substance: AMITRIPTYLINE
     Indication: Depression
     Dosage: 10 MG, QD
     Route: 048
  21. ERGOCALCIFEROL [Concomitant]
     Active Substance: ERGOCALCIFEROL
     Indication: Product used for unknown indication
     Dosage: 50000 IU, 1X/WEEK
     Route: 048
  22. NEUROBION [Concomitant]
     Active Substance: CYANOCOBALAMIN\PYRIDOXINE\THIAMINE
     Indication: Product used for unknown indication
     Dosage: UNK
     Route: 048
  23. ADCO ALCOPHYLLIN [Concomitant]
     Indication: Product used for unknown indication
     Dosage: UNK
     Route: 048
  24. Adco linctopent [Concomitant]
     Indication: Product used for unknown indication
     Dosage: UNK
     Route: 048
  25. ADCO DOL [Concomitant]
     Indication: Product used for unknown indication
     Dosage: 1 TO 2 DF THREE TIMES A DAY
     Route: 048
  26. ETORICOXIB [Concomitant]
     Active Substance: ETORICOXIB
     Indication: Pain
     Dosage: 60 MG, QD
     Route: 048
  27. MINOXIDIL [Concomitant]
     Active Substance: MINOXIDIL
     Indication: Product used for unknown indication
     Dosage: SPRAY DAILY IN THE AFFECTED AREA
     Route: 061
  28. ONDANSETRON HYDROCHLORIDE [Concomitant]
     Active Substance: ONDANSETRON HYDROCHLORIDE
     Indication: Product used for unknown indication
     Dosage: 2 MG, QD
     Route: 048
  29. XAILIN [Concomitant]
     Indication: Product used for unknown indication
     Dosage: APPLY INTO THE AFFECTED EYE AT NIGHT
     Route: 047
  30. ACETYLCYSTEINE [Concomitant]
     Active Substance: ACETYLCYSTEINE
     Indication: Product used for unknown indication
     Dosage: 600 MG, QD
     Route: 048

REACTIONS (2)
  - Systemic lupus erythematosus [Unknown]
  - Product use issue [Recovered/Resolved]
